FAERS Safety Report 7494668-3 (Version None)
Quarter: 2011Q2

REPORT INFORMATION
  Report Type: 
  Country: None (occurrence: None)
  Receive Date: 20110520
  Receipt Date: 20110510
  Transmission Date: 20111010
  Serious: Yes (Hospitalization)
  Sender: FDA-Public Use
  Company Number: US-PURDUE-USA-2010-0047552

PATIENT
  Sex: Female

DRUGS (2)
  1. OXYCONTIN [Suspect]
     Indication: PAIN
     Dosage: 60 MG, SEE TEXT
  2. OXYCONTIN [Concomitant]
     Indication: PAIN
     Dosage: 40 MG, TID

REACTIONS (9)
  - HOSPITALISATION [None]
  - DRUG INEFFECTIVE [None]
  - FOREIGN BODY [None]
  - MEDICATION RESIDUE [None]
  - PRODUCT SIZE ISSUE [None]
  - INTENTIONAL DRUG MISUSE [None]
  - MALAISE [None]
  - VOMITING [None]
  - DRUG EFFECT DECREASED [None]
